FAERS Safety Report 8371539-1 (Version None)
Quarter: 2012Q2

REPORT INFORMATION
  Report Type: 
  Country: None (occurrence: None)
  Receive Date: 20120518
  Receipt Date: 20120510
  Transmission Date: 20120825
  Serious: Yes (Hospitalization)
  Sender: FDA-Public Use
  Company Number: US-ABBOTT-97P-163-0517778-00

PATIENT
  Sex: Male
  Weight: 66.738 kg

DRUGS (1)
  1. LUPRON DEPOT [Suspect]
     Indication: PROSTATE CANCER
     Dosage: 7.5 MG

REACTIONS (11)
  - PYREXIA [None]
  - PHARYNGITIS [None]
  - LYMPHADENOPATHY [None]
  - VOMITING [None]
  - WEIGHT DECREASED [None]
  - MALAISE [None]
  - ABDOMINAL PAIN [None]
  - NAUSEA [None]
  - DECREASED APPETITE [None]
  - HEPATITIS [None]
  - LIVER FUNCTION TEST ABNORMAL [None]
